FAERS Safety Report 5165658-0 (Version None)
Quarter: 2006Q4

REPORT INFORMATION
  Report Type: 
  Country: None (occurrence: None)
  Receive Date: 20061128
  Receipt Date: 20061122
  Transmission Date: 20070319
  Serious: Yes (Other)
  Sender: FDA-Public Use
  Company Number: BEWYE758321JUN06

PATIENT
  Age: 62 Year
  Sex: Male

DRUGS (4)
  1. EFFEXOR [Suspect]
     Indication: DEPRESSION
     Dosage: 150MG 1X PER 1 DAY
     Route: 048
     Dates: start: 20060206, end: 20060615
  2. XANAX XR [Concomitant]
  3. RANTIDINE (RANITIDINE) [Concomitant]
  4. MEBEVERINE (MEBEVERINE) [Concomitant]

REACTIONS (1)
  - ATRIAL FLUTTER [None]
